FAERS Safety Report 17641045 (Version 11)
Quarter: 2024Q2

REPORT INFORMATION
  Report Type: Spontaneous
  Country: ES (occurrence: ES)
  Receive Date: 20200408
  Receipt Date: 20240508
  Transmission Date: 20240715
  Serious: Yes (Hospitalization)
  Sender: FDA-Public Use
  Company Number: ES-OTSUKA-2020_002117

PATIENT
  Age: 46 Year
  Sex: Female
  Weight: 63.6 kg

DRUGS (19)
  1. EBASTINE [Suspect]
     Active Substance: EBASTINE
     Indication: Influenza
     Dosage: UNK
     Route: 065
     Dates: start: 20191216
  2. EBASTINE [Suspect]
     Active Substance: EBASTINE
     Dosage: UNK
     Route: 065
     Dates: start: 20200210
  3. ACETAMINOPHEN [Suspect]
     Active Substance: ACETAMINOPHEN
     Indication: Influenza
     Dosage: 1 GRAM, 3 TIMES A DAY
     Route: 065
     Dates: start: 201912
  4. ACETAMINOPHEN [Suspect]
     Active Substance: ACETAMINOPHEN
     Indication: Pyrexia
     Dosage: 1 GRAM, 3 TIMES A DAY (3 GRAM, ONCE A DAY)
     Route: 065
     Dates: start: 20200128
  5. ACETAMINOPHEN [Suspect]
     Active Substance: ACETAMINOPHEN
     Indication: Abdominal pain upper
  6. TRAMADOL [Suspect]
     Active Substance: TRAMADOL\TRAMADOL HYDROCHLORIDE
     Indication: Influenza
     Dosage: UNK
     Route: 065
     Dates: start: 201912
  7. DOXAZOSIN MESYLATE [Suspect]
     Active Substance: DOXAZOSIN MESYLATE
     Indication: Hypertension
     Dosage: UNK
     Route: 065
     Dates: start: 20180706
  8. CHLORPHENIRAMINE MALEATE [Suspect]
     Active Substance: CHLORPHENIRAMINE MALEATE
     Indication: Product used for unknown indication
     Dosage: UNK
     Route: 065
     Dates: start: 20200128
  9. DIPYRONE [Suspect]
     Active Substance: DIPYRONE
     Indication: Product used for unknown indication
     Dosage: UNK
     Route: 030
  10. ESOMEPRAZOLE [Suspect]
     Active Substance: ESOMEPRAZOLE
     Indication: Oesophagitis
     Dosage: UNK,SPORADICALLY TAKEN, ALTHOUGH IT WAS TAKEN IN THE LAST 48 H.
     Route: 065
     Dates: start: 20191216
  11. ESOMEPRAZOLE [Suspect]
     Active Substance: ESOMEPRAZOLE
     Dosage: UNK
     Route: 065
     Dates: start: 20200210
  12. LOPERAMIDE HYDROCHLORIDE [Suspect]
     Active Substance: LOPERAMIDE HYDROCHLORIDE
     Indication: Diarrhoea
     Dosage: UNK
     Route: 065
     Dates: start: 20200128
  13. OLMESARTAN MEDOXOMIL [Suspect]
     Active Substance: OLMESARTAN MEDOXOMIL
     Indication: Product used for unknown indication
     Dosage: UNK
     Route: 065
     Dates: start: 20190114
  14. TOLVAPTAN [Suspect]
     Active Substance: TOLVAPTAN
     Indication: Congenital cystic kidney disease
     Dosage: 120 MILLIGRAM, ONCE A DAY
     Route: 065
     Dates: start: 201903, end: 20200115
  15. MAXALT [Suspect]
     Active Substance: RIZATRIPTAN BENZOATE
     Indication: Product used for unknown indication
     Dosage: UNK, RARELY TAKEN
     Route: 065
     Dates: start: 20180706
  16. METAMIZOLE [Suspect]
     Active Substance: METAMIZOLE
     Indication: Abdominal pain upper
     Dosage: UNK
     Route: 030
  17. METAMIZOLE [Suspect]
     Active Substance: METAMIZOLE
     Indication: Pyrexia
  18. ASCORBIC ACID [Suspect]
     Active Substance: ASCORBIC ACID
     Indication: Product used for unknown indication
     Dosage: UNK (FOR 1 DAY)
     Route: 065
     Dates: start: 20200128
  19. ROBAXIN [Suspect]
     Active Substance: METHOCARBAMOL
     Indication: Muscle spasms
     Dosage: UNK,TAKEN ON CERTAIN OCCASIONS
     Dates: start: 20191122

REACTIONS (13)
  - Liver disorder [Recovered/Resolved]
  - Oesophagitis [Recovered/Resolved]
  - Vomiting [Recovered/Resolved]
  - Diarrhoea [Recovered/Resolved]
  - Influenza [Recovered/Resolved]
  - Gallbladder polyp [Unknown]
  - Aspartate aminotransferase increased [Recovered/Resolved]
  - Rhinorrhoea [Recovered/Resolved]
  - Alanine aminotransferase increased [Recovered/Resolved]
  - Abdominal pain upper [Recovered/Resolved]
  - Cough [Recovered/Resolved]
  - Pyrexia [Recovered/Resolved]
  - Muscle spasms [Recovered/Resolved]

NARRATIVE: CASE EVENT DATE: 20191122
